FAERS Safety Report 14364666 (Version 1)
Quarter: 2018Q1

REPORT INFORMATION
  Report Type: Spontaneous
  Country: US (occurrence: US)
  Receive Date: 20180106
  Receipt Date: 20180106
  Transmission Date: 20180509
  Serious: Yes (Other)
  Sender: FDA-Public Use
  Company Number: None

PATIENT
  Age: 56 Year
  Weight: 103.5 kg

DRUGS (4)
  1. HYDROCODONE 10-325 [Suspect]
     Active Substance: ACETAMINOPHEN\HYDROCODONE BITARTRATE
     Indication: SPINAL COLUMN INJURY
     Route: 048
     Dates: start: 20171222, end: 20180104
  2. HYDROCODONE [Concomitant]
     Active Substance: HYDROCODONE
  3. AMOLDIPINE [Concomitant]
  4. ZEDIA [Concomitant]

REACTIONS (2)
  - Nausea [None]
  - Drug ineffective [None]

NARRATIVE: CASE EVENT DATE: 20171222
